FAERS Safety Report 25333583 (Version 1)
Quarter: 2025Q2

REPORT INFORMATION
  Report Type: Spontaneous
  Country: CN (occurrence: CN)
  Receive Date: 20250520
  Receipt Date: 20250520
  Transmission Date: 20250716
  Serious: Yes (Other)
  Sender: Haleon PLC
  Company Number: CN-HALEON-2242903

PATIENT
  Age: 87 Year
  Sex: Female
  Weight: 70 kg

DRUGS (1)
  1. IBUPROFEN [Suspect]
     Active Substance: IBUPROFEN
     Indication: Back pain
     Route: 048
     Dates: start: 20250515, end: 20250515

REACTIONS (3)
  - Temperature intolerance [Recovering/Resolving]
  - Asthenia [Recovering/Resolving]
  - Body temperature decreased [Recovering/Resolving]

NARRATIVE: CASE EVENT DATE: 20250515
